FAERS Safety Report 6288664-1 (Version None)
Quarter: 2009Q3

REPORT INFORMATION
  Report Type: 
  Country: None (occurrence: None)
  Receive Date: 20090729
  Receipt Date: 20090716
  Transmission Date: 20100115
  Serious: Yes (Other)
  Sender: FDA-Public Use
  Company Number: US-ELI_LILLY_AND_COMPANY-US200907003516

PATIENT
  Sex: Female

DRUGS (9)
  1. FORTEO [Suspect]
     Dosage: UNK, UNK
     Dates: start: 20090703
  2. METOPROLOL [Concomitant]
     Dosage: 100 MG, UNK
  3. BENICAR [Concomitant]
     Dosage: 20 MG, UNK
  4. HYDROCHLOROTHIAZIDE [Concomitant]
     Dosage: 25 MG, UNK
  5. SYNTHROID [Concomitant]
     Dosage: 100 UG, UNK
  6. CLONAZEPAM [Concomitant]
     Dosage: 0.25 MG, 2/D
  7. NORVASC [Concomitant]
     Dosage: 5 MG, AS NEEDED
  8. WARFARIN SODIUM [Concomitant]
     Dosage: 2.5 MG, AS NEEDED
  9. WARFARIN SODIUM [Concomitant]
     Dosage: 5 MG, AS NEEDED

REACTIONS (3)
  - BLOOD PRESSURE DECREASED [None]
  - HAEMODILUTION [None]
  - INTERNATIONAL NORMALISED RATIO INCREASED [None]
